FAERS Safety Report 8374521-3 (Version None)
Quarter: 2012Q2

REPORT INFORMATION
  Report Type: 
  Country: None (occurrence: None)
  Receive Date: 20120521
  Receipt Date: 20120417
  Transmission Date: 20120825
  Serious: No
  Sender: FDA-Public Use
  Company Number: US-ASTRAZENECA-2010SE00213

PATIENT
  Age: 67 Year
  Sex: Female
  Weight: 72.6 kg

DRUGS (4)
  1. SEROQUEL XR [Suspect]
     Indication: SLEEP DISORDER
     Route: 048
  2. SEROQUEL XR [Suspect]
     Route: 048
  3. SEROQUEL XR [Suspect]
     Indication: DEPRESSION
     Route: 048
  4. SEROQUEL XR [Suspect]
     Route: 048

REACTIONS (7)
  - COLD SWEAT [None]
  - DIARRHOEA [None]
  - NAUSEA [None]
  - INTENTIONAL DRUG MISUSE [None]
  - TREMOR [None]
  - DECREASED APPETITE [None]
  - INSOMNIA [None]
